FAERS Safety Report 5850193-4 (Version None)
Quarter: 2008Q3

REPORT INFORMATION
  Report Type: 
  Country: None (occurrence: None)
  Receive Date: 20080819
  Receipt Date: 20080728
  Transmission Date: 20090109
  Serious: No
  Sender: FDA-Public Use
  Company Number: US-BOEHRINGER INGELHEIM GMBH, GERMANY-2008-BP-11817BP

PATIENT
  Age: 58 Year
  Sex: Female

DRUGS (4)
  1. MIRAPEX [Suspect]
     Indication: RESTLESS LEGS SYNDROME
     Dates: start: 20080201
  2. BENICAR [Concomitant]
     Indication: HYPERTENSION
  3. ADVAIR DISKUS 100/50 [Concomitant]
     Indication: ASTHMA
  4. LEVOXYL [Concomitant]
     Indication: THYROID DISORDER

REACTIONS (2)
  - REBOUND EFFECT [None]
  - RESTLESS LEGS SYNDROME [None]
